FAERS Safety Report 20382098 (Version 2)
Quarter: 2022Q1

REPORT INFORMATION
  Report Type: Spontaneous
  Country: US (occurrence: US)
  Receive Date: 20220127
  Receipt Date: 20220217
  Transmission Date: 20220424
  Serious: No
  Sender: FDA-Public Use
  Company Number: US-BAYER-2022A012398

PATIENT
  Age: 30 Year
  Sex: Male

DRUGS (1)
  1. ALEVE [Suspect]
     Active Substance: NAPROXEN SODIUM
     Dosage: 2 DF
     Route: 048
     Dates: start: 2021, end: 2021

REACTIONS (10)
  - Mouth ulceration [Recovered/Resolved]
  - Throat tightness [Recovered/Resolved]
  - Chills [Recovered/Resolved]
  - Pain [Recovered/Resolved]
  - Rash [Recovered/Resolved]
  - Rash [Recovered/Resolved]
  - Penile rash [Recovered/Resolved]
  - Penile blister [Recovered/Resolved]
  - Blister [Recovered/Resolved]
  - Influenza like illness [Recovered/Resolved]
